FAERS Safety Report 16646827 (Version 1)
Quarter: 2019Q3

REPORT INFORMATION
  Report Type: Spontaneous
  Country: PL (occurrence: PL)
  Receive Date: 20190730
  Receipt Date: 20190730
  Transmission Date: 20191004
  Serious: Yes (Other)
  Sender: FDA-Public Use
  Company Number: PL-IPSEN BIOPHARMACEUTICALS, INC.-2019-13165

PATIENT

DRUGS (1)
  1. INCRELEX [Suspect]
     Active Substance: MECASERMIN
     Indication: PRIMARY INSULIN LIKE GROWTH FACTOR-1 DEFICIENCY
     Route: 065

REACTIONS (5)
  - Tonsillar hypertrophy [Unknown]
  - Otitis media chronic [Unknown]
  - Condition aggravated [Unknown]
  - Scoliosis [Unknown]
  - Conductive deafness [Unknown]
